FAERS Safety Report 6847108 (Version 9)
Quarter: 2013Q2

REPORT INFORMATION
  Report Type: Spontaneous
  Country: US (occurrence: US)
  Receive Date: 20081212
  Receipt Date: 20130626
  Transmission Date: 20140414
  Serious: Yes (Death)
  Sender: FDA-Public Use
  Company Number: US-ROCHE-602437

PATIENT
  Age: 64 Year
  Sex: Female

DRUGS (25)
  1. MABTHERA [Suspect]
     Indication: IDIOPATHIC THROMBOCYTOPENIC PURPURA
     Dosage: 375/M2, UNK
     Route: 042
  2. MABTHERA [Suspect]
     Route: 042
  3. MABTHERA [Suspect]
     Indication: LUPUS-LIKE SYNDROME
     Route: 065
  4. MABTHERA [Suspect]
     Route: 065
  5. PREDNISONE [Concomitant]
     Indication: ARTHRALGIA
     Dosage: 60 MG, UNK
     Route: 065
  6. PREDNISONE [Concomitant]
     Dosage: 10 MG, QOD
     Route: 065
  7. PREDNISONE [Concomitant]
     Dosage: 5-15 MG, UNK
     Route: 065
  8. PREDNISONE [Concomitant]
     Dosage: 10-20 MG, UNK
     Route: 065
  9. IMURAN [Concomitant]
     Indication: PRODUCT USED FOR UNKNOWN INDICATION
     Dosage: 200 UNK, BID
     Route: 065
  10. DANAZOL [Concomitant]
     Indication: IDIOPATHIC THROMBOCYTOPENIC PURPURA
  11. IGIV [Concomitant]
     Indication: IDIOPATHIC THROMBOCYTOPENIC PURPURA
     Route: 042
  12. ROMIPLOSTIM [Concomitant]
     Indication: IDIOPATHIC THROMBOCYTOPENIC PURPURA
  13. ATENOLOL [Concomitant]
     Indication: PRODUCT USED FOR UNKNOWN INDICATION
  14. OMEPRAZOLE [Concomitant]
     Indication: PRODUCT USED FOR UNKNOWN INDICATION
  15. SUMATRIPTAN [Concomitant]
     Indication: PRODUCT USED FOR UNKNOWN INDICATION
  16. ACETAMINOPHEN [Concomitant]
     Indication: PRODUCT USED FOR UNKNOWN INDICATION
  17. ASCORBIC ACID [Concomitant]
     Indication: PRODUCT USED FOR UNKNOWN INDICATION
  18. ERGOCALCIFEROL [Concomitant]
     Indication: PRODUCT USED FOR UNKNOWN INDICATION
  19. IRON POLYSACCHARIDE [Concomitant]
     Indication: PRODUCT USED FOR UNKNOWN INDICATION
  20. ESTROGENS, CONJUGATED [Concomitant]
     Indication: PRODUCT USED FOR UNKNOWN INDICATION
  21. CALCIUM CARBONATE [Concomitant]
     Indication: PRODUCT USED FOR UNKNOWN INDICATION
  22. ZOLEDRONIC ACID [Concomitant]
     Indication: PRODUCT USED FOR UNKNOWN INDICATION
  23. SULFAMETHOXAZOLE [Concomitant]
     Indication: PRODUCT USED FOR UNKNOWN INDICATION
  24. ALPRAZOLAM [Concomitant]
     Indication: INSOMNIA
  25. MIRTAZAPINE [Concomitant]
     Indication: DEPRESSION

REACTIONS (2)
  - Progressive multifocal leukoencephalopathy [Fatal]
  - Chest pain [Recovered/Resolved]
